FAERS Safety Report 12902007 (Version 1)
Quarter: 2016Q4

REPORT INFORMATION
  Report Type: Spontaneous
  Country: IT (occurrence: IT)
  Receive Date: 20161102
  Receipt Date: 20161102
  Transmission Date: 20170207
  Serious: Yes (Hospitalization)
  Sender: FDA-Public Use
  Company Number: PHHY2016IT149167

PATIENT
  Age: 87 Year
  Sex: Female

DRUGS (5)
  1. TAREG [Suspect]
     Active Substance: VALSARTAN
     Indication: HYPERTENSION
     Dosage: 1 DF, ALTERNATES DAYS
     Route: 048
     Dates: start: 20160901, end: 20161002
  2. LOVINACOR [Concomitant]
     Indication: PRODUCT USED FOR UNKNOWN INDICATION
     Dosage: UNK
     Route: 048
  3. COTAREG [Suspect]
     Active Substance: HYDROCHLOROTHIAZIDE\VALSARTAN
     Indication: HYPERTENSION
     Dosage: 1 DF, ALTERNATES DAYS
     Route: 048
     Dates: start: 20160901, end: 20161002
  4. ACETYLSALICYLIC ACID [Concomitant]
     Active Substance: ASPIRIN
     Indication: PRODUCT USED FOR UNKNOWN INDICATION
     Dosage: UNK
     Route: 048
  5. TAVOR (LORAZEPAM) [Concomitant]
     Active Substance: LORAZEPAM
     Indication: PRODUCT USED FOR UNKNOWN INDICATION
     Dosage: UNK
     Route: 048

REACTIONS (8)
  - Hypokalaemia [Unknown]
  - Tremor [Unknown]
  - Vomiting [Unknown]
  - Diarrhoea [Unknown]
  - Presyncope [Unknown]
  - Headache [Unknown]
  - Hyponatraemic syndrome [Unknown]
  - Mood swings [Unknown]

NARRATIVE: CASE EVENT DATE: 20161001
